FAERS Safety Report 12937352 (Version 8)
Quarter: 2019Q3

REPORT INFORMATION
  Report Type: Spontaneous
  Country: US (occurrence: US)
  Receive Date: 20161114
  Receipt Date: 20190918
  Transmission Date: 20191004
  Serious: No
  Sender: FDA-Public Use
  Company Number: US-PFIZER INC-2016526042

PATIENT
  Sex: Female

DRUGS (3)
  1. LYRICA [Suspect]
     Active Substance: PREGABALIN
     Dosage: 75 MG, AS NEEDED [1 ORAL, 75 MG, 4 TIMES A DAY (QID), AS NEEDED (PRN)]
     Route: 048
  2. LYRICA [Suspect]
     Active Substance: PREGABALIN
     Indication: NEURALGIA
     Dosage: 75 MG, DAILY
  3. LYRICA [Suspect]
     Active Substance: PREGABALIN
     Dosage: 75 MG, FOUR TIMES A DAY

REACTIONS (7)
  - Pain [Unknown]
  - Headache [Unknown]
  - Agitation [Unknown]
  - Intentional product use issue [Unknown]
  - Burning sensation [Unknown]
  - Sensitivity to weather change [Unknown]
  - Arthritis [Not Recovered/Not Resolved]
